FAERS Safety Report 8911034 (Version 2)
Quarter: 2012Q4

REPORT INFORMATION
  Report Type: 
  Country: US (occurrence: US)
  Receive Date: 20121116
  Receipt Date: 20121128
  Transmission Date: 20130627
  Serious: Yes (Other)
  Sender: FDA-Public Use
  Company Number: US-JNJFOC-20121104766

PATIENT
  Sex: Female
  Weight: 58.06 kg

DRUGS (3)
  1. TOPAMAX [Suspect]
     Indication: CONVULSION
     Route: 048
     Dates: start: 200908
  2. TOPAMAX [Suspect]
     Indication: CONVULSION
     Dosage: 100 mg and a split 100mg/once nightly/oral
     Route: 048
     Dates: start: 200908
  3. IMITREX [Concomitant]
     Indication: MIGRAINE
     Route: 048
     Dates: start: 2007

REACTIONS (5)
  - Convulsion [Unknown]
  - Headache [Unknown]
  - Treatment noncompliance [Unknown]
  - Wrong technique in drug usage process [Unknown]
  - Incorrect dose administered [Unknown]
